FAERS Safety Report 19069560 (Version 2)
Quarter: 2021Q2

REPORT INFORMATION
  Report Type: Spontaneous
  Country: CA (occurrence: CA)
  Receive Date: 20210329
  Receipt Date: 20210622
  Transmission Date: 20210717
  Serious: Yes (Other)
  Sender: FDA-Public Use
  Company Number: CA-ROCHE-2791628

PATIENT
  Sex: Female

DRUGS (1)
  1. OCREVUS [Suspect]
     Active Substance: OCRELIZUMAB
     Indication: PRIMARY PROGRESSIVE MULTIPLE SCLEROSIS
     Route: 065
     Dates: start: 2018

REACTIONS (9)
  - Pruritus [Unknown]
  - Dry eye [Unknown]
  - Oral herpes [Unknown]
  - Nasal dryness [Unknown]
  - Photophobia [Unknown]
  - Cough [Unknown]
  - Asthenia [Unknown]
  - Back pain [Unknown]
  - Asphyxia [Unknown]
